FAERS Safety Report 4423178-2 (Version None)
Quarter: 2004Q3

REPORT INFORMATION
  Report Type: 
  Country: None (occurrence: None)
  Receive Date: 20040805
  Receipt Date: 20040727
  Transmission Date: 20050211
  Serious: Yes (Other)
  Sender: FDA-Public Use
  Company Number: 2004050914

PATIENT
  Age: 33 Year
  Sex: Female
  Weight: 97.5234 kg

DRUGS (6)
  1. GEODON [Suspect]
     Indication: BIPOLAR DISORDER
     Dosage: 80 MG (40 MG, 2 IN 1 D), ORAL
     Route: 048
     Dates: start: 20040716, end: 20040725
  2. GEODON [Suspect]
     Indication: INSOMNIA
     Dosage: 80 MG (40 MG, 2 IN 1 D), ORAL
     Route: 048
     Dates: start: 20040716, end: 20040725
  3. GEODON [Suspect]
     Indication: MANIA
     Dosage: 80 MG (40 MG, 2 IN 1 D), ORAL
     Route: 048
     Dates: start: 20040716, end: 20040725
  4. VICODIN [Concomitant]
  5. OXYCODONE HCL [Concomitant]
  6. TOPIRAMATE [Concomitant]

REACTIONS (4)
  - ANAPHYLACTIC SHOCK [None]
  - INSOMNIA [None]
  - MANIA [None]
  - RASH [None]
